FAERS Safety Report 17508267 (Version 1)
Quarter: 2020Q1

REPORT INFORMATION
  Report Type: Spontaneous
  Country: US (occurrence: US)
  Receive Date: 20200306
  Receipt Date: 20200306
  Transmission Date: 20200409
  Serious: Yes (Other)
  Sender: FDA-Public Use
  Company Number: US-SA-2020SA056732

PATIENT
  Sex: Female

DRUGS (1)
  1. ZANTAC [Suspect]
     Active Substance: RANITIDINE HYDROCHLORIDE
     Dosage: 150 MG, QD (SHE TOOK 150MG PER DAY AND OVER 800MG PER WEEK)
     Dates: start: 2005, end: 2019

REACTIONS (2)
  - Anxiety [Unknown]
  - Bladder cancer [Unknown]

NARRATIVE: CASE EVENT DATE: 201808
